FAERS Safety Report 5005577-3 (Version None)
Quarter: 2006Q2

REPORT INFORMATION
  Report Type: 
  Country: None (occurrence: None)
  Receive Date: 20060512
  Receipt Date: 20060503
  Transmission Date: 20061013
  Serious: Yes (Hospitalization, Other)
  Sender: FDA-Public Use
  Company Number: FRWYE706731MAY05

PATIENT
  Age: 21 Year
  Sex: Female

DRUGS (1)
  1. ETHINYL ESTRADIOL AND LEVONORGESTREL [Suspect]
     Route: 048
     Dates: start: 20041015, end: 20050318

REACTIONS (2)
  - COR PULMONALE ACUTE [None]
  - PULMONARY EMBOLISM [None]
